FAERS Safety Report 23486965 (Version 2)
Quarter: 2024Q3

REPORT INFORMATION
  Report Type: Spontaneous
  Country: CN (occurrence: CN)
  Receive Date: 20240206
  Receipt Date: 20240808
  Transmission Date: 20241016
  Serious: Yes (Hospitalization)
  Sender: JOHNSON AND JOHNSON
  Company Number: CN-JNJFOC-20240185443

PATIENT
  Sex: Male
  Weight: 1.4 kg

DRUGS (1)
  1. CHILDRENS MOTRIN [Suspect]
     Active Substance: IBUPROFEN
     Indication: Patent ductus arteriosus
     Dosage: ROUTE OF ADMINISTRATION: NASOGASTRIC FEEDING
     Route: 050
     Dates: start: 20240110, end: 20240112

REACTIONS (3)
  - Off label use [Unknown]
  - Oliguria [Recovering/Resolving]
  - Blood creatinine increased [Recovering/Resolving]

NARRATIVE: CASE EVENT DATE: 20240110
